FAERS Safety Report 5738578-8 (Version None)
Quarter: 2008Q2

REPORT INFORMATION
  Report Type: 
  Country: None (occurrence: None)
  Receive Date: 20080513
  Receipt Date: 20080225
  Transmission Date: 20081010
  Serious: No
  Sender: FDA-Public Use
  Company Number: ADE# 08-027

PATIENT
  Age: 43 Year
  Sex: Female
  Weight: 54.4316 kg

DRUGS (6)
  1. CLONZEPAM TABLETS, USP 2MG [Suspect]
     Indication: ANXIETY
     Dosage: 2MG, 3XDAILY
     Dates: start: 20080206
  2. CLONZEPAM TABLETS, USP 2MG [Suspect]
     Indication: PANIC ATTACK
     Dosage: 2MG, 3XDAILY
     Dates: start: 20080206
  3. CLONZEPAM TABLETS, USP 2MG [Suspect]
     Indication: POST-TRAUMATIC STRESS DISORDER
     Dosage: 2MG, 3XDAILY
     Dates: start: 20080206
  4. ZOLOFT [Concomitant]
  5. EFFEXOR [Concomitant]
  6. CLONIDINE [Concomitant]

REACTIONS (5)
  - ANXIETY [None]
  - FLASHBACK [None]
  - PANIC ATTACK [None]
  - PHARMACEUTICAL PRODUCT COMPLAINT [None]
  - POOR QUALITY DRUG ADMINISTERED [None]
